FAERS Safety Report 8103677-2 (Version None)
Quarter: 2012Q1

REPORT INFORMATION
  Report Type: 
  Country: None (occurrence: None)
  Receive Date: 20120201
  Receipt Date: 20120120
  Transmission Date: 20120608
  Serious: Yes (Other)
  Sender: FDA-Public Use
  Company Number: US-ROCHE-1034771

PATIENT
  Sex: Male

DRUGS (4)
  1. TARCEVA [Suspect]
     Indication: PANCREATIC CARCINOMA METASTATIC
     Route: 048
  2. GEMZAR [Suspect]
     Indication: PANCREATIC CARCINOMA
  3. XELODA [Suspect]
     Indication: PANCREATIC CARCINOMA METASTATIC
  4. TARCEVA [Suspect]

REACTIONS (3)
  - DEAFNESS [None]
  - RASH [None]
  - INCORRECT DOSE ADMINISTERED [None]
